FAERS Safety Report 22652067 (Version 1)
Quarter: 2023Q2

REPORT INFORMATION
  Report Type: Report from Study
  Country: CA (occurrence: CA)
  Receive Date: 20230628
  Receipt Date: 20230628
  Transmission Date: 20230722
  Serious: Yes (Hospitalization, Other)
  Sender: FDA-Public Use
  Company Number: CA-HLS-202301564

PATIENT
  Age: 48 Year
  Sex: Male
  Weight: 91 kg

DRUGS (2)
  1. CLOZARIL [Suspect]
     Active Substance: CLOZAPINE
     Indication: Product used for unknown indication
     Route: 048
     Dates: start: 20220511
  2. ARIPIPRAZOLE [Suspect]
     Active Substance: ARIPIPRAZOLE
     Indication: Product used for unknown indication
     Route: 065
     Dates: end: 202304

REACTIONS (6)
  - Hypertension [Unknown]
  - Chest pain [Unknown]
  - Mitral valve incompetence [Unknown]
  - Electrocardiogram QT prolonged [Unknown]
  - Sinus tachycardia [Unknown]
  - Tricuspid valve incompetence [Unknown]

NARRATIVE: CASE EVENT DATE: 20230427
